FAERS Safety Report 7864082-7 (Version None)
Quarter: 2011Q4

REPORT INFORMATION
  Report Type: 
  Country: None (occurrence: None)
  Receive Date: 20111028
  Receipt Date: 20111018
  Transmission Date: 20120403
  Serious: No
  Sender: FDA-Public Use
  Company Number: US-JNJFOC-20110909606

PATIENT
  Sex: Female
  Weight: 58.97 kg

DRUGS (1)
  1. DURAGESIC-100 [Suspect]
     Indication: PRODUCT USED FOR UNKNOWN INDICATION
     Route: 062
     Dates: start: 20010101

REACTIONS (5)
  - WRONG TECHNIQUE IN DRUG USAGE PROCESS [None]
  - APPLICATION SITE URTICARIA [None]
  - PRODUCT QUALITY ISSUE [None]
  - HYPERHIDROSIS [None]
  - PRODUCT ADHESION ISSUE [None]
